FAERS Safety Report 12507608 (Version 3)
Quarter: 2016Q3

REPORT INFORMATION
  Report Type: Report from Study
  Country: BR (occurrence: BR)
  Receive Date: 20160629
  Receipt Date: 20160712
  Transmission Date: 20161109
  Serious: Yes (Other)
  Sender: FDA-Public Use
  Company Number: PHHY2016BR055982

PATIENT
  Age: 57 Year
  Sex: Female
  Weight: 54 kg

DRUGS (3)
  1. GILENYA [Suspect]
     Active Substance: FINGOLIMOD HYDROCHLORIDE
     Indication: RELAPSING-REMITTING MULTIPLE SCLEROSIS
     Dosage: 0.5 MG, QD
     Route: 048
     Dates: start: 20150803
  2. RIVOTRIL [Concomitant]
     Active Substance: CLONAZEPAM
     Indication: STRESS
     Dosage: 1 DF, (AT NIGHT)
     Route: 065
  3. AMITRIL [Concomitant]
     Active Substance: AMITRIPTYLINE HYDROCHLORIDE
     Indication: STRESS
     Route: 065

REACTIONS (12)
  - Visual impairment [Unknown]
  - Anaemia [Not Recovered/Not Resolved]
  - Concomitant disease aggravated [Unknown]
  - Fatigue [Unknown]
  - Full blood count abnormal [Unknown]
  - Confusional state [Unknown]
  - Decreased immune responsiveness [Unknown]
  - Decreased appetite [Not Recovered/Not Resolved]
  - Urinary tract infection [Unknown]
  - Nervousness [Unknown]
  - Irritability [Unknown]
  - Memory impairment [Unknown]

NARRATIVE: CASE EVENT DATE: 201512
